FAERS Safety Report 8375725-6 (Version None)
Quarter: 2012Q2

REPORT INFORMATION
  Report Type: 
  Country: None (occurrence: None)
  Receive Date: 20120522
  Receipt Date: 20120420
  Transmission Date: 20120825
  Serious: Yes (Other)
  Sender: FDA-Public Use
  Company Number: GB-US-EMD SERONO, INC.-7120616

PATIENT

DRUGS (1)
  1. REBIF [Suspect]
     Indication: PRODUCT USED FOR UNKNOWN INDICATION

REACTIONS (3)
  - HAEMOLYTIC URAEMIC SYNDROME [None]
  - THROMBOTIC THROMBOCYTOPENIC PURPURA [None]
  - RENAL FAILURE ACUTE [None]
